FAERS Safety Report 13405527 (Version 1)
Quarter: 2017Q2

REPORT INFORMATION
  Report Type: Spontaneous
  Country: US (occurrence: US)
  Receive Date: 20170405
  Receipt Date: 20170405
  Transmission Date: 20170830
  Serious: Yes (Hospitalization, Other)
  Sender: FDA-Public Use
  Company Number: US-UNICHEM LABORATORIES LIMITED-UCM201703-000075

PATIENT
  Age: 15 Year
  Sex: Female

DRUGS (1)
  1. CLONIDINE HCL [Suspect]
     Active Substance: CLONIDINE HYDROCHLORIDE
     Route: 048

REACTIONS (5)
  - Atrioventricular block second degree [Unknown]
  - Somnolence [Unknown]
  - Suicidal ideation [Unknown]
  - Intentional overdose [Unknown]
  - Bradycardia [Unknown]
